FAERS Safety Report 19939584 (Version 3)
Quarter: 2022Q4

REPORT INFORMATION
  Report Type: Spontaneous
  Country: GB (occurrence: GB)
  Receive Date: 20211011
  Receipt Date: 20221228
  Transmission Date: 20230113
  Serious: Yes (Other)
  Sender: FDA-Public Use
  Company Number: None

PATIENT
  Age: 76 Year
  Sex: Female
  Weight: 76 kg

DRUGS (8)
  1. INDAPAMIDE [Suspect]
     Active Substance: INDAPAMIDE
     Indication: Hypertension
     Dosage: 2.5 MG
     Route: 065
  2. LOSARTAN [Suspect]
     Active Substance: LOSARTAN
     Indication: Blood pressure increased
     Dosage: 50 MG
     Route: 065
  3. LOSARTAN POTASSIUM [Suspect]
     Active Substance: LOSARTAN POTASSIUM
     Indication: Product used for unknown indication
     Dosage: 75 MG INCREASED EARLY 2021 TO 75 MG
     Route: 048
     Dates: start: 1972
  4. DIAGEMET [Concomitant]
     Indication: Product used for unknown indication
     Dosage: 500 MG, QD (XL)
     Route: 065
  5. LANSOPRAZOLE [Concomitant]
     Active Substance: LANSOPRAZOLE
     Indication: Product used for unknown indication
     Dosage: 15 MG, PRN (TAKEN OCCASIONALLY)
     Route: 065
  6. CALCIUM CARBONATE\CHOLECALCIFEROL [Concomitant]
     Active Substance: CALCIUM CARBONATE\CHOLECALCIFEROL
     Indication: Product used for unknown indication
     Dosage: 600MG/400IU
     Route: 065
  7. SOLPADOL [Concomitant]
     Indication: Sleep disorder
     Dosage: 0.5 DF, PRN
     Route: 065
  8. VITAMIN D [Concomitant]
     Active Substance: VITAMIN D NOS
     Indication: Product used for unknown indication
     Dosage: 3, 1000IU(25UG)
     Route: 065

REACTIONS (4)
  - Paraesthesia [Not Recovered/Not Resolved]
  - Sleep disorder [Not Recovered/Not Resolved]
  - Hyperhidrosis [Not Recovered/Not Resolved]
  - Burning feet syndrome [Not Recovered/Not Resolved]

NARRATIVE: CASE EVENT DATE: 19800101
